FAERS Safety Report 8329485-5 (Version None)
Quarter: 2012Q2

REPORT INFORMATION
  Report Type: 
  Country: None (occurrence: None)
  Receive Date: 20120502
  Receipt Date: 20120427
  Transmission Date: 20120825
  Serious: Yes (Other)
  Sender: FDA-Public Use
  Company Number: US-PFIZER INC-2012105313

PATIENT
  Sex: Male
  Weight: 107 kg

DRUGS (5)
  1. LYRICA [Suspect]
     Indication: PAIN
     Dosage: 150 MG, DAILY
     Route: 048
     Dates: start: 20120101, end: 20120101
  2. LYRICA [Suspect]
     Indication: LEG AMPUTATION
     Dosage: 75 MG, DAILY
     Route: 048
     Dates: start: 20120201, end: 20120101
  3. LYRICA [Suspect]
     Dosage: 50 MG, DAILY
     Route: 048
     Dates: start: 20120101, end: 20120417
  4. NOVOLOG [Concomitant]
     Indication: DIABETES MELLITUS
     Dosage: 6 IU, 3X/DAY
  5. LANTUS [Concomitant]
     Indication: DIABETES MELLITUS
     Dosage: 40 IU, DAILY

REACTIONS (3)
  - GLOSSODYNIA [None]
  - OROPHARYNGEAL PAIN [None]
  - FACIAL PAIN [None]
